FAERS Safety Report 7217306-3 (Version None)
Quarter: 2011Q1

REPORT INFORMATION
  Report Type: 
  Country: None (occurrence: None)
  Receive Date: 20110110
  Receipt Date: 20101228
  Transmission Date: 20110831
  Serious: Yes (Life-Threatening)
  Sender: FDA-Public Use
  Company Number: JP-CELGENEUS-087-21880-10123076

PATIENT
  Sex: Female

DRUGS (4)
  1. LENADEX [Suspect]
     Indication: MULTIPLE MYELOMA
     Route: 048
     Dates: start: 20101029, end: 20101204
  2. REVLIMID [Suspect]
     Indication: MULTIPLE MYELOMA
     Route: 048
     Dates: start: 20101029, end: 20101104
  3. REVLIMID [Suspect]
     Route: 048
     Dates: start: 20101105, end: 20101109
  4. PLATELETS [Suspect]
     Indication: THROMBOCYTOPENIA
     Route: 065
     Dates: start: 20101101

REACTIONS (2)
  - THROMBOCYTOPENIA [None]
  - NEUTROPENIA [None]
